FAERS Safety Report 9387615 (Version 1)
Quarter: 2013Q3

REPORT INFORMATION
  Report Type: Spontaneous
  Country: DE (occurrence: DE)
  Receive Date: 20130708
  Receipt Date: 20130708
  Transmission Date: 20140515
  Serious: Yes (Other)
  Sender: FDA-Public Use
  Company Number: DE-PFIZER INC-2013197524

PATIENT
  Sex: Male

DRUGS (2)
  1. GABAPENTIN [Suspect]
     Dosage: 300 MG, MORNING1DF/NOONTIME1DF/EVENING2DF
  2. SIRDALUD [Concomitant]
     Indication: MUSCLE SPASTICITY
     Dosage: UNK

REACTIONS (1)
  - Abasia [Unknown]
